FAERS Safety Report 20560839 (Version 1)
Quarter: 2022Q1

REPORT INFORMATION
  Report Type: Spontaneous
  Country: JP (occurrence: JP)
  Receive Date: 20220307
  Receipt Date: 20220307
  Transmission Date: 20220423
  Serious: Yes (Disabling)
  Sender: FDA-Public Use
  Company Number: JP-ALLERGAN-2203316US

PATIENT
  Sex: Female

DRUGS (5)
  1. ALPHAGAN P [Suspect]
     Active Substance: BRIMONIDINE TARTRATE
     Indication: Open angle glaucoma
     Dosage: 2 GTT
     Route: 047
     Dates: start: 201602, end: 20220106
  2. LUMIGAN [Suspect]
     Active Substance: BIMATOPROST
     Indication: Open angle glaucoma
     Dosage: 1 GTT
     Dates: end: 20220106
  3. RIPASUDIL HYDROCHLORIDE DIHYDRATE [Suspect]
     Active Substance: RIPASUDIL HYDROCHLORIDE DIHYDRATE
     Indication: Product used for unknown indication
     Dosage: 2 GTT
     Route: 047
     Dates: end: 20220106
  4. XALATAN [Concomitant]
     Active Substance: LATANOPROST
  5. HYALURONATE SODIUM [Concomitant]
     Active Substance: HYALURONATE SODIUM
     Indication: Dry eye
     Dosage: 1 GTT
     Dates: end: 20220106

REACTIONS (3)
  - Corneal opacity [Not Recovered/Not Resolved]
  - Blepharitis [Recovered/Resolved]
  - Conjunctival hyperaemia [Recovered/Resolved]

NARRATIVE: CASE EVENT DATE: 20210101
